FAERS Safety Report 7394592-0 (Version None)
Quarter: 2011Q2

REPORT INFORMATION
  Report Type: 
  Country: None (occurrence: None)
  Receive Date: 20110405
  Receipt Date: 20110324
  Transmission Date: 20111010
  Serious: Yes (Other)
  Sender: FDA-Public Use
  Company Number: US-JNJFOC-2010027188

PATIENT
  Sex: Female
  Weight: 74.8 kg

DRUGS (1)
  1. LISTERINE TOTAL CARE PLUS WHITENING [Suspect]
     Indication: DENTAL CARE
     Dosage: DAILY DOSE TEXT: 1 TO 1.5 TEASPOONFUL ONCE
     Route: 048
     Dates: start: 20101101, end: 20101101

REACTIONS (8)
  - LOOSE TOOTH [None]
  - FACIAL PAIN [None]
  - CHEMICAL INJURY [None]
  - TOOTH DISCOLOURATION [None]
  - GINGIVAL DISCOLOURATION [None]
  - PRODUCT QUALITY ISSUE [None]
  - INFECTION [None]
  - SWELLING FACE [None]
